FAERS Safety Report 21526382 (Version 2)
Quarter: 2024Q4

REPORT INFORMATION
  Report Type: Spontaneous
  Country: US (occurrence: US)
  Receive Date: 20221031
  Receipt Date: 20241106
  Transmission Date: 20250114
  Serious: No
  Sender: UCB
  Company Number: US-UCBSA-2022018711

PATIENT
  Sex: Male

DRUGS (5)
  1. VIMPAT [Suspect]
     Active Substance: LACOSAMIDE
     Indication: Seizure
     Dosage: 100MG TABLET 3 TAB ORAL 1 IN AM, 2 IN PM
     Route: 048
  2. LEVETIRACETAM [Concomitant]
     Active Substance: LEVETIRACETAM
     Indication: Seizure
     Dosage: 3000 MILLIGRAM, DAILY
     Route: 048
     Dates: start: 20190827
  3. CLONAZEPAM [Concomitant]
     Active Substance: CLONAZEPAM
     Indication: Product used for unknown indication
  4. PRILOSEC [Concomitant]
     Active Substance: OMEPRAZOLE MAGNESIUM
     Indication: Product used for unknown indication
  5. KLONOPIN [Concomitant]
     Active Substance: CLONAZEPAM
     Indication: Product used for unknown indication

REACTIONS (2)
  - Off label use [Unknown]
  - Overdose [Unknown]
